FAERS Safety Report 24013801 (Version 1)
Quarter: 2024Q2

REPORT INFORMATION
  Report Type: Spontaneous
  Country: US (occurrence: US)
  Receive Date: 20240626
  Receipt Date: 20240626
  Transmission Date: 20240715
  Serious: No
  Sender: FDA-Public Use
  Company Number: US-ALCON LABORATORIES-ALC2024US002207

PATIENT
  Sex: Female

DRUGS (2)
  1. OLOPATADINE HYDROCHLORIDE [Suspect]
     Active Substance: OLOPATADINE HYDROCHLORIDE
     Indication: Product used for unknown indication
     Dosage: UNKNOWN
     Route: 065
  2. PATANOL [Concomitant]
     Active Substance: OLOPATADINE HYDROCHLORIDE
     Indication: Product used for unknown indication
     Dosage: UNKNOWN
     Route: 065

REACTIONS (1)
  - Pain [Unknown]
